FAERS Safety Report 4554890-2 (Version None)
Quarter: 2004Q4

REPORT INFORMATION
  Report Type: 
  Country: None (occurrence: None)
  Receive Date: 20041222
  Receipt Date: 20040827
  Transmission Date: 20050328
  Serious: Yes (Hospitalization)
  Sender: FDA-Public Use
  Company Number: 208730

PATIENT
  Age: 75 Year
  Sex: Male
  Weight: 82.5 kg

DRUGS (3)
  1. AVASTIN [Suspect]
     Indication: COLORECTAL CANCER METASTATIC
     Dosage: 5 MG/KG, Q2W, INTRAVENOUS
     Route: 042
     Dates: start: 20040524, end: 20040726
  2. LEUCOVORIN CALCIUM [Suspect]
     Indication: COLORECTAL CANCER METASTATIC
     Dosage: 1000 MG, INTRAVENOUS
     Route: 042
     Dates: start: 20040524, end: 20040802
  3. FLUOROURACIL [Suspect]
     Indication: COLORECTAL CANCER METASTATIC
     Dosage: 1200 MG, INTRAVENOUS
     Route: 042
     Dates: start: 20040628, end: 20040802

REACTIONS (3)
  - DIZZINESS [None]
  - HYPOTENSION [None]
  - NEUTROPENIA [None]
